FAERS Safety Report 8452676-X (Version None)
Quarter: 2012Q2

REPORT INFORMATION
  Report Type: 
  Country: None (occurrence: None)
  Receive Date: 20120620
  Receipt Date: 20120518
  Transmission Date: 20120825
  Serious: No
  Sender: FDA-Public Use
  Company Number: US-VERTEX PHARMACEUTICALS INC.-AE-2012-005818

PATIENT
  Sex: Female
  Weight: 112 kg

DRUGS (7)
  1. CYTOLOPRAM [Concomitant]
  2. INCIVEK [Suspect]
     Indication: HEPATITIS C
     Route: 048
     Dates: start: 20120416
  3. RIBAVIRIN [Concomitant]
     Indication: HEPATITIS C
     Route: 048
     Dates: start: 20120417
  4. CALCIUM [Concomitant]
  5. VITAMIN D [Concomitant]
  6. PEGASYS [Concomitant]
     Indication: HEPATITIS C
     Route: 058
     Dates: start: 20120416
  7. LEVOTHYROXINE SODIUM [Concomitant]

REACTIONS (4)
  - TONGUE ERUPTION [None]
  - ORAL MUCOSAL BLISTERING [None]
  - RASH [None]
  - NAUSEA [None]
